FAERS Safety Report 5898226-3 (Version None)
Quarter: 2008Q3

REPORT INFORMATION
  Report Type: 
  Country: None (occurrence: None)
  Receive Date: 20080925
  Receipt Date: 20080917
  Transmission Date: 20090109
  Serious: Yes (Hospitalization)
  Sender: FDA-Public Use
  Company Number: FR-JNJFOC-20080904210

PATIENT
  Age: 94 Year
  Sex: Female

DRUGS (1)
  1. OFLOCET [Suspect]
     Indication: SEPSIS
     Route: 048

REACTIONS (2)
  - HEPATITIS CHOLESTATIC [None]
  - LYMPHOPENIA [None]
